FAERS Safety Report 20843196 (Version 2)
Quarter: 2022Q2

REPORT INFORMATION
  Report Type: Report from Study
  Country: US (occurrence: US)
  Receive Date: 20220518
  Receipt Date: 20220616
  Transmission Date: 20220721
  Serious: Yes (Death, Hospitalization, Other)
  Sender: FDA-Public Use
  Company Number: US-UCBSA-2022027268

PATIENT
  Sex: Female

DRUGS (1)
  1. LACOSAMIDE [Suspect]
     Active Substance: LACOSAMIDE
     Indication: Seizure
     Dosage: 50 MILLIGRAM, 2X/DAY (BID)
     Dates: end: 20220405

REACTIONS (6)
  - Small cell lung cancer extensive stage [Fatal]
  - Brain cancer metastatic [Fatal]
  - Generalised tonic-clonic seizure [Unknown]
  - Coma [Unknown]
  - Tumour excision [Unknown]
  - Stress [Unknown]
